FAERS Safety Report 22348528 (Version 2)
Quarter: 2023Q2

REPORT INFORMATION
  Report Type: Spontaneous
  Country: US (occurrence: US)
  Receive Date: 20230522
  Receipt Date: 20230612
  Transmission Date: 20230721
  Serious: No
  Sender: FDA-Public Use
  Company Number: US-AMGEN-USASP2023086119

PATIENT
  Age: 43 Year
  Sex: Male

DRUGS (1)
  1. TAVNEOS [Suspect]
     Active Substance: AVACOPAN
     Indication: Antineutrophil cytoplasmic antibody positive
     Dosage: 30 MILLIGRAM, BID (30 MG) BY MOUTH TWICE DAILY WITH FOOD FOR VASCULITIS
     Route: 048

REACTIONS (2)
  - Blood pressure increased [Unknown]
  - Diarrhoea [Unknown]
